FAERS Safety Report 4308688-0 (Version None)
Quarter: 2004Q1

REPORT INFORMATION
  Report Type: 
  Country: None (occurrence: None)
  Receive Date: 20040226
  Receipt Date: 20040216
  Transmission Date: 20041129
  Serious: Yes (Hospitalization)
  Sender: FDA-Public Use
  Company Number: ES-JNJFOC-20030800192

PATIENT
  Age: 51 Year
  Sex: Female

DRUGS (3)
  1. REMICADE [Suspect]
     Indication: RHEUMATOID ARTHRITIS
     Dosage: 3 MG/KG, INTRAVENOUS
     Route: 042
  2. PREDNISONE [Concomitant]
  3. METHOTREXATE [Concomitant]

REACTIONS (4)
  - DRUG INEFFECTIVE [None]
  - IMMUNOSUPPRESSION [None]
  - RESPIRATORY TRACT INFECTION [None]
  - TUBERCULOSIS [None]
